FAERS Safety Report 9377017 (Version 1)
Quarter: 2013Q3

REPORT INFORMATION
  Report Type: Other
  Country: AT (occurrence: AT)
  Receive Date: 20130701
  Receipt Date: 20130701
  Transmission Date: 20140515
  Serious: Yes (Other)
  Sender: FDA-Public Use
  Company Number: AT-EISAI INC-E7272-00196-SPO-AT

PATIENT
  Age: 72 Year
  Sex: Male

DRUGS (2)
  1. ONTAK [Suspect]
     Indication: MYCOSIS FUNGOIDES
     Route: 041
  2. THALIDOMIDE [Concomitant]
     Dosage: UNKNOWN

REACTIONS (3)
  - Device related sepsis [Recovered/Resolved]
  - Hypohidrosis [Unknown]
  - Dry skin [Unknown]
